FAERS Safety Report 24957243 (Version 3)
Quarter: 2025Q3

REPORT INFORMATION
  Report Type: Spontaneous
  Country: US (occurrence: US)
  Receive Date: 20250211
  Receipt Date: 20250923
  Transmission Date: 20251020
  Serious: No
  Sender: SANOFI AVENTIS
  Company Number: US-SA-2025SA040799

PATIENT
  Sex: Male

DRUGS (1)
  1. DUPIXENT [Suspect]
     Active Substance: DUPILUMAB
     Indication: Dermatitis
     Dosage: 300 MG, Q4W
     Route: 058

REACTIONS (5)
  - Dermatitis [Unknown]
  - Rebound effect [Unknown]
  - Product dose omission issue [Unknown]
  - Gastrointestinal inflammation [Unknown]
  - Off label use [Unknown]
